FAERS Safety Report 18454693 (Version 6)
Quarter: 2022Q3

REPORT INFORMATION
  Report Type: Spontaneous
  Country: US (occurrence: US)
  Receive Date: 20201102
  Receipt Date: 20220701
  Transmission Date: 20221027
  Serious: Yes (Other)
  Sender: FDA-Public Use
  Company Number: US-PFIZER INC-2020421417

PATIENT
  Age: 24 Year
  Sex: Male

DRUGS (4)
  1. BENEFIX [Suspect]
     Active Substance: COAGULATION FACTOR IX RECOMBINANT HUMAN\ISOPROPYL ALCOHOL
     Indication: Factor IX deficiency
     Dosage: 4200 IU, AS NEEDED (4200 UNITS (+/-5%) INTRAVENOUSLY EVERY 24-48 HOURS FOR 1-2 DOSES AS NEEDED)
     Route: 042
  2. BENEFIX [Suspect]
     Active Substance: COAGULATION FACTOR IX RECOMBINANT HUMAN\ISOPROPYL ALCOHOL
     Dosage: 8400 IU, AS NEEDED (8400 UNITS (+/-5%) INTRAVENOUSLY EVERY 24-48 HOURS FOR 1-3 DOSES AS NEEDED)
     Route: 042
  3. BENEFIX [Suspect]
     Active Substance: COAGULATION FACTOR IX RECOMBINANT HUMAN\ISOPROPYL ALCOHOL
     Dosage: 4200 IU (INFUSE, 4200 UNITS (+/-5%) INTRAVENOUSLY EVERY 24-48 HOURS FOR 1-2 DOSES, AND 8400)
     Route: 042
  4. BENEFIX [Suspect]
     Active Substance: COAGULATION FACTOR IX RECOMBINANT HUMAN\ISOPROPYL ALCOHOL
     Dosage: 2000 IU (INFUSE ~ 4200 UNITS (+/-5% ) INTRAVENOUSLY EVERY 24-48 HOURS FOR 1-2 DOSES FOR MILD BLEED)
     Route: 042

REACTIONS (7)
  - Muscle haemorrhage [Unknown]
  - Haemorrhage [Unknown]
  - Haemarthrosis [Unknown]
  - Foot fracture [Unknown]
  - Ligament sprain [Unknown]
  - Fall [Unknown]
  - Arthralgia [Unknown]
